FAERS Safety Report 7702000-2 (Version None)
Quarter: 2011Q3

REPORT INFORMATION
  Report Type: 
  Country: None (occurrence: None)
  Receive Date: 20110822
  Receipt Date: 20110818
  Transmission Date: 20111222
  Serious: Yes (Death)
  Sender: FDA-Public Use
  Company Number: PHHY2011CH73415

PATIENT
  Sex: Male
  Weight: 45 kg

DRUGS (2)
  1. SERETIDE [Concomitant]
     Dosage: UNK
  2. INDACATEROL [Suspect]
     Indication: CHRONIC OBSTRUCTIVE PULMONARY DISEASE
     Dates: start: 20110322

REACTIONS (1)
  - DEATH [None]
